FAERS Safety Report 4422935-6 (Version None)
Quarter: 2004Q3

REPORT INFORMATION
  Report Type: 
  Country: None (occurrence: None)
  Receive Date: 20040811
  Receipt Date: 20040806
  Transmission Date: 20050211
  Serious: Yes (Life-Threatening, Hospitalization, Disabling)
  Sender: FDA-Public Use
  Company Number: US-JNJFOC-20040702269

PATIENT
  Sex: Male
  Weight: 92.99 kg

DRUGS (10)
  1. NATRECOR [Suspect]
     Route: 042
  2. SPIRONOLACTONE [Concomitant]
     Route: 049
  3. DIGOXIN [Concomitant]
     Dosage: TAKEN ON MONDAY, WEDNESDAY AND FRIDAY
  4. ASPIRIN [Concomitant]
  5. POTASSIUM CHLORIDE [Concomitant]
     Route: 049
  6. ALPRAZOLAM [Concomitant]
  7. DUONEB [Concomitant]
     Route: 055
  8. DUONEB [Concomitant]
     Dosage: 0.5/2.5 MG TWICE A DAY
     Route: 055
  9. ASPIRIN [Concomitant]
     Dosage: TOOK INFREQUENTLY AT HOME
     Route: 049
  10. FUROSIMIDE [Concomitant]
     Route: 042

REACTIONS (18)
  - ASTHENIA [None]
  - ATRIAL NATRIURETIC PEPTIDE INCREASED [None]
  - BLOOD GLUCOSE INCREASED [None]
  - BLOOD UREA INCREASED [None]
  - BREATH SOUNDS DECREASED [None]
  - CARDIAC VALVE DISEASE [None]
  - CEREBRAL ATROPHY [None]
  - CEREBRAL INFARCTION [None]
  - CEREBRAL ISCHAEMIA [None]
  - CEREBROVASCULAR ACCIDENT [None]
  - CORONARY ARTERY EMBOLISM [None]
  - FACIAL PALSY [None]
  - FACIAL PARESIS [None]
  - PITTING OEDEMA [None]
  - PLATELET COUNT DECREASED [None]
  - PROTHROMBIN TIME PROLONGED [None]
  - SUPRAVENTRICULAR EXTRASYSTOLES [None]
  - TACHYCARDIA [None]
